FAERS Safety Report 6206725-X (Version None)
Quarter: 2009Q2

REPORT INFORMATION
  Report Type: 
  Country: None (occurrence: None)
  Receive Date: 20090528
  Receipt Date: 20090522
  Transmission Date: 20091009
  Serious: Yes (Other)
  Sender: FDA-Public Use
  Company Number: JP-NOVOPROD-287410

PATIENT
  Age: 68 Year
  Sex: Male

DRUGS (3)
  1. LEVEMIR [Suspect]
     Indication: DIABETES MELLITUS
     Dosage: 10 IU, QD
     Route: 058
     Dates: start: 20080428, end: 20090511
  2. NOVORAPID CHU FLEXPEN [Concomitant]
     Indication: DIABETES MELLITUS
     Dosage: 30 U, QD
     Route: 058
  3. KINEDAK [Concomitant]
     Indication: DIABETES MELLITUS
     Dosage: UNK, UNK
     Route: 048

REACTIONS (1)
  - HEPATIC FUNCTION ABNORMAL [None]
